FAERS Safety Report 25829758 (Version 2)
Quarter: 2025Q4

REPORT INFORMATION
  Report Type: Spontaneous
  Country: US (occurrence: US)
  Receive Date: 20250922
  Receipt Date: 20251007
  Transmission Date: 20260118
  Serious: Yes (Other)
  Sender: RADIUS PHARM
  Company Number: US-RADIUS HEALTH INC.-US-RADIUS-25052990

PATIENT
  Age: 59 Year
  Sex: Female

DRUGS (4)
  1. TYMLOS [Suspect]
     Active Substance: ABALOPARATIDE
     Indication: Senile osteoporosis
     Dosage: 80 MICROGRAM, QD
     Route: 058
  2. TYMLOS [Suspect]
     Active Substance: ABALOPARATIDE
     Dosage: 40 MICROGRAM, QD
     Route: 058
  3. TYMLOS [Suspect]
     Active Substance: ABALOPARATIDE
     Dosage: 60 MICROGRAM, QD
     Route: 058
  4. TYMLOS [Suspect]
     Active Substance: ABALOPARATIDE
     Dosage: 80 MICROGRAM, QD
     Route: 058
     Dates: start: 202509

REACTIONS (6)
  - Renal impairment [Unknown]
  - Tinnitus [Not Recovered/Not Resolved]
  - Headache [Unknown]
  - Heart rate increased [Not Recovered/Not Resolved]
  - Intentional dose omission [Unknown]
  - Off label use [Unknown]

NARRATIVE: CASE EVENT DATE: 20250801
